FAERS Safety Report 24650230 (Version 2)
Quarter: 2025Q1

REPORT INFORMATION
  Report Type: Spontaneous
  Country: US (occurrence: US)
  Receive Date: 20241122
  Receipt Date: 20250216
  Transmission Date: 20250409
  Serious: No
  Sender: ELI LILLY AND COMPANY
  Company Number: US-ELI_LILLY_AND_COMPANY-US202411013486

PATIENT
  Age: 39 Year
  Sex: Female

DRUGS (1)
  1. OMVOH [Suspect]
     Active Substance: MIRIKIZUMAB-MRKZ
     Indication: Colitis ulcerative
     Route: 042
     Dates: start: 20241118

REACTIONS (7)
  - Dehydration [Recovered/Resolved]
  - Blood pressure decreased [Unknown]
  - Dizziness [Unknown]
  - Psoriasis [Recovered/Resolved]
  - Presyncope [Unknown]
  - Influenza [Unknown]
  - Headache [Recovered/Resolved]

NARRATIVE: CASE EVENT DATE: 20241118
